FAERS Safety Report 17222918 (Version 1)
Quarter: 2020Q1

REPORT INFORMATION
  Report Type: Spontaneous
  Country: CA (occurrence: CA)
  Receive Date: 20200102
  Receipt Date: 20200102
  Transmission Date: 20200409
  Serious: Yes (Other)
  Sender: FDA-Public Use
  Company Number: CA-ROCHE-2505173

PATIENT
  Age: 7 Year
  Sex: Male

DRUGS (14)
  1. ETOPOSIDE. [Concomitant]
     Active Substance: ETOPOSIDE
  2. MYCOPHENOLATE MOFETIL. [Concomitant]
     Active Substance: MYCOPHENOLATE MOFETIL
     Indication: PROPHYLAXIS AGAINST GRAFT VERSUS HOST DISEASE
  3. CLOFARABINE. [Concomitant]
     Active Substance: CLOFARABINE
  4. SIROLIMUS. [Concomitant]
     Active Substance: SIROLIMUS
     Indication: PROPHYLAXIS AGAINST GRAFT VERSUS HOST DISEASE
  5. VINCRISTINE [Concomitant]
     Active Substance: VINCRISTINE
  6. NELARABINE [Concomitant]
     Active Substance: NELARABINE
  7. PEG/L-ASPARAGINASE [Concomitant]
     Active Substance: PEGASPARGASE
  8. CYCLOSPORINE. [Concomitant]
     Active Substance: CYCLOSPORINE
     Indication: PROPHYLAXIS AGAINST GRAFT VERSUS HOST DISEASE
  9. RITUXIMAB. [Suspect]
     Active Substance: RITUXIMAB
     Indication: ACUTE LYMPHOCYTIC LEUKAEMIA
     Route: 041
  10. RITUXIMAB. [Suspect]
     Active Substance: RITUXIMAB
     Indication: LEUKAEMIA
  11. CYCLOPHOSPHAMIDE. [Concomitant]
     Active Substance: CYCLOPHOSPHAMIDE
  12. CYTARABINE. [Concomitant]
     Active Substance: CYTARABINE
  13. MERCAPTOPURINE. [Concomitant]
     Active Substance: MERCAPTOPURINE
  14. THYMOGLOBULIN [Concomitant]
     Active Substance: LAPINE T-LYMPHOCYTE IMMUNE GLOBULIN
     Indication: PROPHYLAXIS AGAINST GRAFT VERSUS HOST DISEASE
     Route: 065

REACTIONS (3)
  - Post transplant lymphoproliferative disorder [Recovered/Resolved]
  - Epstein-Barr virus infection [Recovered/Resolved]
  - Cytomegalovirus infection [Recovered/Resolved]
